FAERS Safety Report 17916660 (Version 1)
Quarter: 2020Q2

REPORT INFORMATION
  Report Type: Spontaneous
  Country: US (occurrence: US)
  Receive Date: 20200619
  Receipt Date: 20200619
  Transmission Date: 20200714
  Serious: Yes (Death, Hospitalization)
  Sender: FDA-Public Use
  Company Number: US-PFIZER INC-2020235600

PATIENT
  Age: 62 Year
  Sex: Male

DRUGS (7)
  1. FUROSEMIDE. [Suspect]
     Active Substance: FUROSEMIDE
     Indication: HYPERCALCAEMIA
     Dosage: UNK
     Route: 042
  2. NORMAL SALINE [Concomitant]
     Active Substance: SODIUM CHLORIDE
     Route: 040
  3. FLUOROURACIL. [Concomitant]
     Active Substance: FLUOROURACIL
     Indication: OESOPHAGEAL SQUAMOUS CELL CARCINOMA
     Dosage: UNK, CYCLIC
  4. CARBOPLATIN. [Concomitant]
     Active Substance: CARBOPLATIN
     Indication: OESOPHAGEAL SQUAMOUS CELL CARCINOMA
     Dosage: UNK, CYCLIC
  5. CINACALCET. [Suspect]
     Active Substance: CINACALCET
     Indication: HYPERCALCAEMIA
     Dosage: UNK
  6. CALCITONIN [Suspect]
     Active Substance: CALCITONIN
     Indication: HYPERCALCAEMIA
     Dosage: UNK
  7. PAMIDRONATE DISODIUM. [Suspect]
     Active Substance: PAMIDRONATE DISODIUM
     Indication: HYPERCALCAEMIA
     Dosage: UNK
     Route: 042

REACTIONS (1)
  - Drug ineffective [Fatal]
